FAERS Safety Report 17364740 (Version 2)
Quarter: 2020Q1

REPORT INFORMATION
  Report Type: Spontaneous
  Country: SG (occurrence: SG)
  Receive Date: 20200204
  Receipt Date: 20200213
  Transmission Date: 20200409
  Serious: Yes (Hospitalization, Other)
  Sender: FDA-Public Use
  Company Number: SG-ACCORD-171333

PATIENT
  Age: 55 Year
  Sex: Male

DRUGS (3)
  1. AZATHIOPRINE. [Concomitant]
     Active Substance: AZATHIOPRINE
     Indication: DYSHIDROTIC ECZEMA
     Dates: start: 2018, end: 2019
  2. AMLODIPINE [Suspect]
     Active Substance: AMLODIPINE BESYLATE
     Indication: HYPERTENSION
     Dates: start: 2018, end: 2019
  3. CICLOSPORIN [Concomitant]
     Active Substance: CYCLOSPORINE
     Indication: DYSHIDROTIC ECZEMA
     Dates: start: 2017, end: 2019

REACTIONS (1)
  - T-cell lymphoma [Recovered/Resolved]

NARRATIVE: CASE EVENT DATE: 2018
